FAERS Safety Report 5143695-X (Version None)
Quarter: 2006Q4

REPORT INFORMATION
  Report Type: 
  Country: None (occurrence: None)
  Receive Date: 20061103
  Receipt Date: 20060829
  Transmission Date: 20070319
  Serious: Yes (Other)
  Sender: FDA-Public Use
  Company Number: GB-ABBOTT-06P-167-0342680-00

PATIENT
  Sex: Male
  Weight: 1.82 kg

DRUGS (2)
  1. KALETRA [Suspect]
     Indication: DRUG EXPOSURE DURING PREGNANCY
     Route: 065
  2. LAMIVUDINE + ZIDOVUDINE [Suspect]
     Indication: DRUG EXPOSURE DURING PREGNANCY
     Route: 065

REACTIONS (6)
  - CONGENITAL GASTRIC ANOMALY [None]
  - DRUG EXPOSURE DURING PREGNANCY [None]
  - GASTRIC DISORDER [None]
  - OESOPHAGEAL ATRESIA [None]
  - TRISOMY 18 [None]
  - VENTRICULAR SEPTAL DEFECT [None]
